FAERS Safety Report 4842494-3 (Version None)
Quarter: 2005Q4

REPORT INFORMATION
  Report Type: 
  Country: None (occurrence: None)
  Receive Date: 20051129
  Receipt Date: 20051114
  Transmission Date: 20060501
  Serious: Yes (Other)
  Sender: FDA-Public Use
  Company Number: USA0509108760

PATIENT
  Age: 38 Year
  Sex: Male
  Weight: 113.4 kg

DRUGS (14)
  1. ZYPREXA [Suspect]
     Indication: BIPOLAR DISORDER
     Dosage: 10 MG, DAILY (1/D)
     Dates: start: 20050302, end: 20050926
  2. OXYCONTIN [Concomitant]
  3. BACLOFEN [Concomitant]
  4. PAROXETINE (PAROXETINE) [Concomitant]
  5. DOCUSATE SODIUM (DOCUSATE SODIUM) [Concomitant]
  6. GABAPENTIN [Concomitant]
  7. AMBIEN [Concomitant]
  8. VITAMINS NOS (VITAMINS NOS) [Concomitant]
  9. IRON (IRON) [Concomitant]
  10. DITROPAN XL [Concomitant]
  11. CEFUROXIME [Concomitant]
  12. GABITRIL [Concomitant]
  13. TIZANIDINE HCL [Concomitant]
  14. BISACODYL (BISACODYL) [Concomitant]

REACTIONS (4)
  - BLOOD GLUCOSE INCREASED [None]
  - GLYCOSYLATED HAEMOGLOBIN INCREASED [None]
  - SURGERY [None]
  - WEIGHT INCREASED [None]
